FAERS Safety Report 18417981 (Version 1)
Quarter: 2020Q4

REPORT INFORMATION
  Report Type: Report from Study
  Country: None (occurrence: BR)
  Receive Date: 20201022
  Receipt Date: 20201022
  Transmission Date: 20210114
  Serious: Yes (Other)
  Sender: FDA-Public Use
  Company Number: BR-ABBVIE-20K-020-3613761-00

PATIENT
  Age: 75 Year
  Sex: Female
  Weight: 52.6 kg

DRUGS (7)
  1. DICLOFENAC [Concomitant]
     Active Substance: DICLOFENAC
     Indication: BLOOD CALCIUM
  2. ANCORON [Concomitant]
     Active Substance: AMIODARONE HYDROCHLORIDE
     Indication: ARRHYTHMIA
  3. ALENDRONATE [Concomitant]
     Active Substance: ALENDRONATE SODIUM
     Indication: BLOOD CALCIUM
  4. PROPRANOLOL [Concomitant]
     Active Substance: PROPRANOLOL HYDROCHLORIDE
     Indication: ARRHYTHMIA
  5. HUMIRA [Suspect]
     Active Substance: ADALIMUMAB
     Indication: RHEUMATOID ARTHRITIS
     Route: 058
     Dates: start: 2015
  6. ARADOIS [Concomitant]
     Active Substance: LOSARTAN POTASSIUM
     Indication: BLOOD PRESSURE MEASUREMENT
  7. AFRAT [Concomitant]
     Indication: PRODUCT USED FOR UNKNOWN INDICATION

REACTIONS (28)
  - Mobility decreased [Recovered/Resolved]
  - Pain in extremity [Recovered/Resolved]
  - Thyroid disorder [Not Recovered/Not Resolved]
  - Erythema [Unknown]
  - Nasal congestion [Not Recovered/Not Resolved]
  - Anxiety [Recovering/Resolving]
  - Hypersensitivity [Unknown]
  - Lung disorder [Not Recovered/Not Resolved]
  - Gastrointestinal pain [Recovered/Resolved]
  - Nasal discomfort [Unknown]
  - Drug resistance [Unknown]
  - Blood pressure increased [Unknown]
  - Palpitations [Recovering/Resolving]
  - Blood cholesterol increased [Not Recovered/Not Resolved]
  - Peripheral swelling [Unknown]
  - Pruritus [Unknown]
  - Joint range of motion decreased [Recovered/Resolved]
  - Headache [Unknown]
  - Gastrointestinal tube insertion [Not Recovered/Not Resolved]
  - Speech disorder [Not Recovered/Not Resolved]
  - Lung disorder [Recovered/Resolved]
  - Abdominal pain upper [Recovered/Resolved]
  - Hypophagia [Recovered/Resolved]
  - Neck pain [Recovered/Resolved]
  - Catarrh [Not Recovered/Not Resolved]
  - Memory impairment [Not Recovered/Not Resolved]
  - Therapeutic product effect decreased [Unknown]
  - Nervousness [Unknown]

NARRATIVE: CASE EVENT DATE: 2018
